FAERS Safety Report 7078507-0 (Version None)
Quarter: 2010Q4

REPORT INFORMATION
  Report Type: 
  Country: None (occurrence: None)
  Receive Date: 20101101
  Receipt Date: 20101101
  Transmission Date: 20110411
  Serious: No
  Sender: FDA-Public Use
  Company Number: None

PATIENT
  Age: 39 Year
  Sex: Male
  Weight: 74.8435 kg

DRUGS (1)
  1. LIPITOR [Suspect]
     Dosage: 10MG 1X DAILY PO
     Route: 048

REACTIONS (2)
  - ANGER [None]
  - PRODUCT ODOUR ABNORMAL [None]
